FAERS Safety Report 7547655-0 (Version None)
Quarter: 2011Q2

REPORT INFORMATION
  Report Type: 
  Country: None (occurrence: None)
  Receive Date: 20110614
  Receipt Date: 20110608
  Transmission Date: 20111010
  Serious: Yes (Hospitalization, Disabling, Other)
  Sender: FDA-Public Use
  Company Number: US-MERCK-1102USA00531

PATIENT
  Age: 56 Year
  Sex: Female

DRUGS (3)
  1. ASACOL [Concomitant]
     Indication: CROHN'S DISEASE
     Route: 048
     Dates: start: 19950101
  2. FOSAMAX [Suspect]
     Route: 048
     Dates: start: 19980101, end: 20100101
  3. EVISTA [Concomitant]
     Indication: OSTEOPOROSIS
     Route: 048
     Dates: start: 19950101

REACTIONS (18)
  - ARTHRITIS [None]
  - FOOT FRACTURE [None]
  - OSTEOARTHRITIS [None]
  - COLITIS [None]
  - DEVICE FAILURE [None]
  - HYPOKALAEMIA [None]
  - SINUS DISORDER [None]
  - FALL [None]
  - MENISCUS LESION [None]
  - POLYP [None]
  - FEMUR FRACTURE [None]
  - UTERINE CANCER [None]
  - OSTEOPENIA [None]
  - LIMB INJURY [None]
  - PERIODONTAL DISEASE [None]
  - LOW TURNOVER OSTEOPATHY [None]
  - HAEMORRHOIDS [None]
  - POLYP COLORECTAL [None]
